FAERS Safety Report 8207729-8 (Version None)
Quarter: 2012Q1

REPORT INFORMATION
  Report Type: 
  Country: None (occurrence: None)
  Receive Date: 20120314
  Receipt Date: 20120309
  Transmission Date: 20120608
  Serious: Yes (Death)
  Sender: FDA-Public Use
  Company Number: US-CELGENEUS-163-21880-12031199

PATIENT
  Sex: Female
  Weight: 47.67 kg

DRUGS (3)
  1. OXYCONTIN [Concomitant]
     Dosage: 40 MILLIGRAM
     Route: 065
  2. DILAUDID [Concomitant]
     Dosage: 2 MILLIGRAM
     Route: 065
  3. REVLIMID [Suspect]
     Indication: MULTIPLE MYELOMA
     Dosage: 10 MILLIGRAM
     Route: 048
     Dates: start: 20111013, end: 20120216

REACTIONS (1)
  - DEATH [None]
